FAERS Safety Report 6247223-7 (Version None)
Quarter: 2009Q2

REPORT INFORMATION
  Report Type: 
  Country: None (occurrence: None)
  Receive Date: 20090626
  Receipt Date: 20090616
  Transmission Date: 20091009
  Serious: Yes (Other)
  Sender: FDA-Public Use
  Company Number: GB-PFIZER INC-2009228066

PATIENT

DRUGS (1)
  1. VIBRAMYCIN [Suspect]
     Indication: ACNE
     Dosage: 50 MG, UNK

REACTIONS (1)
  - TRANSIENT ISCHAEMIC ATTACK [None]
